FAERS Safety Report 23560505 (Version 3)
Quarter: 2024Q1

REPORT INFORMATION
  Report Type: Spontaneous
  Country: IT (occurrence: IT)
  Receive Date: 20240223
  Receipt Date: 20240315
  Transmission Date: 20240410
  Serious: Yes (Hospitalization)
  Sender: FDA-Public Use
  Company Number: IT-BIOGEN-2024BI01245657

PATIENT
  Age: 69 Year
  Sex: Male
  Weight: 64 kg

DRUGS (12)
  1. TOFERSEN [Suspect]
     Active Substance: TOFERSEN
     Indication: Amyotrophic lateral sclerosis
     Dosage: 6.7 MG/ML
     Route: 050
     Dates: start: 20221201, end: 20240104
  2. METFORMIN [Concomitant]
     Active Substance: METFORMIN HYDROCHLORIDE
     Indication: Product used for unknown indication
     Route: 050
     Dates: start: 19900615
  3. ERTUGLIFLOZIN [Concomitant]
     Active Substance: ERTUGLIFLOZIN
     Indication: Product used for unknown indication
     Route: 050
     Dates: start: 20221006
  4. LANSOPRAZOLE [Concomitant]
     Active Substance: LANSOPRAZOLE
     Indication: Product used for unknown indication
     Route: 050
     Dates: start: 20150615
  5. ASPIRIN [Concomitant]
     Active Substance: ASPIRIN
     Indication: Product used for unknown indication
     Route: 050
     Dates: start: 20180615
  6. DIAMICRON [Concomitant]
     Indication: Product used for unknown indication
     Route: 050
     Dates: start: 20200615
  7. FLUVASTATIN [Concomitant]
     Active Substance: FLUVASTATIN SODIUM
     Indication: Product used for unknown indication
     Route: 050
     Dates: start: 20200220
  8. RILUZOLE [Concomitant]
     Active Substance: RILUZOLE
     Indication: Product used for unknown indication
     Route: 050
     Dates: start: 20181127
  9. VITAMIN E [Concomitant]
     Active Substance: .ALPHA.-TOCOPHEROL
     Indication: Product used for unknown indication
     Route: 050
  10. ACETYLCARNITINE [Concomitant]
     Active Substance: ACETYLCARNITINE
     Indication: Product used for unknown indication
     Route: 050
     Dates: start: 20130120
  11. PREGABALIN [Concomitant]
     Active Substance: PREGABALIN
     Indication: Product used for unknown indication
     Route: 050
     Dates: start: 20210425
  12. DIETARY SUPPLEMENT\TAUROURSODEOXYCHOLIC ACID [Concomitant]
     Active Substance: DIETARY SUPPLEMENT\TAUROURSODEOXYCHOLIC ACID
     Indication: Product used for unknown indication
     Route: 050
     Dates: start: 20130120

REACTIONS (1)
  - Peripheral artery occlusion [Recovered/Resolved]

NARRATIVE: CASE EVENT DATE: 20231026
